FAERS Safety Report 4523939-5 (Version None)
Quarter: 2004Q4

REPORT INFORMATION
  Report Type: 
  Country: None (occurrence: None)
  Receive Date: 20041209
  Receipt Date: 20041130
  Transmission Date: 20050328
  Serious: Yes (Hospitalization, Other)
  Sender: FDA-Public Use
  Company Number: HQWYE757114OCT04

PATIENT
  Age: 66 Year
  Sex: Male

DRUGS (7)
  1. MINOCYCLINE HCL [Suspect]
     Indication: PROSTATITIS
     Dosage: 100 MG 2X PER 1 DAY ORAL
     Route: 048
     Dates: start: 20040915, end: 20041002
  2. CIPROFLOXACIN HCL [Concomitant]
  3. HARNAL (TAMSULOSIN HYDROCHLORIDE) [Concomitant]
  4. BAYASPIRINA (ACETYLSALICYLIC ACID) [Concomitant]
  5. NORVASC [Concomitant]
  6. TIZANIDINE HCL [Concomitant]
  7. MYONAL (EPERISONE HYDROCHLORIDE) [Concomitant]

REACTIONS (4)
  - EOSINOPHILIC PNEUMONIA [None]
  - LIVER DISORDER [None]
  - PETECHIAE [None]
  - PYREXIA [None]
